FAERS Safety Report 12767548 (Version 4)
Quarter: 2017Q4

REPORT INFORMATION
  Report Type: Report from Study
  Country: IT (occurrence: IT)
  Receive Date: 20160921
  Receipt Date: 20171204
  Transmission Date: 20180320
  Serious: Yes (Hospitalization, Other)
  Sender: FDA-Public Use
  Company Number: IT-PFIZER INC-2016426515

PATIENT
  Age: 59 Year
  Sex: Female
  Weight: 64 kg

DRUGS (7)
  1. PALBOCICLIB [Suspect]
     Active Substance: PALBOCICLIB
     Indication: BREAST CANCER
     Dosage: 125 MG, DAILY FROM DAY 1 TO DAY 21
     Route: 048
     Dates: start: 20160810, end: 20160830
  2. SOLDESAM [Concomitant]
     Active Substance: DEXAMETHASONE
     Indication: BACK PAIN
     Dosage: UNK
     Route: 030
     Dates: start: 20160903
  3. ACTIQ [Concomitant]
     Active Substance: FENTANYL CITRATE
     Indication: PAIN IN EXTREMITY
     Dosage: UNK
     Route: 048
     Dates: start: 20160622
  4. DUROGESIC [Concomitant]
     Active Substance: FENTANYL
     Indication: PAIN IN EXTREMITY
     Dosage: UNK
     Route: 062
     Dates: start: 20160622
  5. LEXOTAN [Concomitant]
     Active Substance: BROMAZEPAM
     Indication: ANXIETY
     Dosage: UNK
     Route: 048
     Dates: start: 2010
  6. LOSAPREX [Concomitant]
     Active Substance: LOSARTAN POTASSIUM
     Indication: HYPERTENSION
     Dosage: UNK
     Route: 048
     Dates: start: 2010
  7. FASLODEX [Suspect]
     Active Substance: FULVESTRANT
     Indication: BREAST CANCER
     Dosage: 500 MG, CYCLIC (DAYS 1, 15 AND 28 IN THE FIRST CYCLE)
     Route: 030
     Dates: start: 20160810

REACTIONS (1)
  - Hepatotoxicity [Recovered/Resolved]

NARRATIVE: CASE EVENT DATE: 20160907
